FAERS Safety Report 14545902 (Version 6)
Quarter: 2018Q3

REPORT INFORMATION
  Report Type: Spontaneous
  Country: CA (occurrence: CA)
  Receive Date: 20180219
  Receipt Date: 20180904
  Transmission Date: 20181010
  Serious: Yes (Hospitalization)
  Sender: FDA-Public Use
  Company Number: CA-ROCHE-2075797

PATIENT
  Age: 65 Year
  Sex: Male
  Weight: 90 kg

DRUGS (12)
  1. XOLAIR [Suspect]
     Active Substance: OMALIZUMAB
     Dosage: 300 MG, EVERY 4 WEEKS
     Route: 058
     Dates: start: 20180730
  2. ATIVAN [Concomitant]
     Active Substance: LORAZEPAM
     Indication: PRODUCT USED FOR UNKNOWN INDICATION
     Route: 065
  3. ATIVAN [Concomitant]
     Active Substance: LORAZEPAM
     Indication: MAJOR DEPRESSION
  4. XOLAIR [Suspect]
     Active Substance: OMALIZUMAB
     Dosage: 300 MG, EVERY 4 WEEKS
     Route: 058
     Dates: start: 20180118
  5. ATARAX [Concomitant]
     Active Substance: HYDROXYZINE HYDROCHLORIDE
     Indication: CHRONIC SPONTANEOUS URTICARIA
     Route: 048
     Dates: start: 201512
  6. EFFEXOR [Concomitant]
     Active Substance: VENLAFAXINE HYDROCHLORIDE
     Route: 048
  7. REACTINE (CANADA) [Concomitant]
     Active Substance: CETIRIZINE HYDROCHLORIDE
     Indication: CHRONIC SPONTANEOUS URTICARIA
     Route: 048
     Dates: start: 201512
  8. CRESTOR [Concomitant]
     Active Substance: ROSUVASTATIN CALCIUM
     Indication: BLOOD CHOLESTEROL ABNORMAL
     Route: 048
     Dates: start: 2006
  9. XOLAIR [Suspect]
     Active Substance: OMALIZUMAB
     Indication: CHRONIC SPONTANEOUS URTICARIA
     Dosage: 300 MG, EVERY 4 WEEKS
     Route: 058
     Dates: start: 20170224
  10. XOLAIR [Suspect]
     Active Substance: OMALIZUMAB
     Dosage: 300 MG, EVERY 4 WEEKS
     Route: 058
     Dates: start: 20180703
  11. NORVASC [Concomitant]
     Active Substance: AMLODIPINE BESYLATE
     Indication: PRODUCT USED FOR UNKNOWN INDICATION
     Route: 048
     Dates: start: 2006
  12. EFFEXOR [Concomitant]
     Active Substance: VENLAFAXINE HYDROCHLORIDE
     Indication: MAJOR DEPRESSION
     Route: 048
     Dates: start: 2006

REACTIONS (3)
  - Malaise [Unknown]
  - Major depression [Recovered/Resolved]
  - Weight decreased [Unknown]

NARRATIVE: CASE EVENT DATE: 201801
